FAERS Safety Report 10043681 (Version 1)
Quarter: 2014Q1

REPORT INFORMATION
  Report Type: Spontaneous
  Country: AU (occurrence: AU)
  Receive Date: 20140328
  Receipt Date: 20140328
  Transmission Date: 20141002
  Serious: Yes (Other)
  Sender: FDA-Public Use
  Company Number: AU-JNJFOC-20140306834

PATIENT
  Age: 50 Year
  Sex: Female
  Weight: 75 kg

DRUGS (3)
  1. STELARA [Suspect]
     Indication: PSORIASIS
     Route: 058
     Dates: start: 201402
  2. STELARA [Suspect]
     Indication: PSORIASIS
     Route: 058
     Dates: start: 201310
  3. STELARA [Suspect]
     Indication: PSORIASIS
     Route: 058
     Dates: start: 201311

REACTIONS (6)
  - Blood creatine phosphokinase increased [Recovering/Resolving]
  - C-reactive protein increased [Recovering/Resolving]
  - Myalgia [Recovering/Resolving]
  - Lethargy [Recovering/Resolving]
  - Headache [Recovering/Resolving]
  - Joint stiffness [Recovering/Resolving]
